FAERS Safety Report 8298396-6 (Version None)
Quarter: 2012Q2

REPORT INFORMATION
  Report Type: 
  Country: None (occurrence: None)
  Receive Date: 20120419
  Receipt Date: 20120410
  Transmission Date: 20120825
  Serious: Yes (Other)
  Sender: FDA-Public Use
  Company Number: US-ROCHE-1058773

PATIENT
  Sex: Male
  Weight: 61.29 kg

DRUGS (2)
  1. AVASTIN [Suspect]
     Indication: COLORECTAL CANCER METASTATIC
     Route: 042
     Dates: start: 20120308
  2. XELODA [Suspect]
     Indication: COLORECTAL CANCER METASTATIC
     Dosage: 2000MG IN MORNING, 1500 MG IN NIGHT
     Route: 048
     Dates: start: 20120308

REACTIONS (6)
  - FATIGUE [None]
  - SKIN DISCOLOURATION [None]
  - ERYTHEMA [None]
  - DRY SKIN [None]
  - PROTEIN URINE [None]
  - PAIN IN EXTREMITY [None]
